FAERS Safety Report 8161433-3 (Version None)
Quarter: 2012Q1

REPORT INFORMATION
  Report Type: 
  Country: None (occurrence: None)
  Receive Date: 20120224
  Receipt Date: 20120222
  Transmission Date: 20120608
  Serious: Yes (Death, Life-Threatening, Other)
  Sender: FDA-Public Use
  Company Number: JP-BAYER-200914523BYL

PATIENT
  Age: 82 Year
  Sex: Male
  Weight: 52 kg

DRUGS (15)
  1. PROMAC [POLAPREZINC] [Concomitant]
     Dosage: BEFORE NEXAVAR ADMINISTRATION
     Route: 048
  2. LASIX [Concomitant]
     Dosage: DAILY DOSE 40 MG
     Route: 048
     Dates: start: 20090904, end: 20091026
  3. FENTANYL-100 [Concomitant]
     Dosage: DAILY DOSE 4.2 MG
     Route: 062
     Dates: start: 20090828, end: 20091026
  4. GASMOTIN [Concomitant]
     Dosage: BEFORE NEXAVAR ADMINISTRATION
     Route: 048
  5. BARACLUDE [Concomitant]
     Dosage: BEFORE NEXAVAR ADMINISTRATION
     Route: 048
  6. ZOLPIDEM [Concomitant]
     Indication: INSOMNIA
     Dosage: BEFORE NEXAVAR ADMINISTRATION
     Route: 048
  7. URSO 250 [Concomitant]
     Dosage: BEFORE NEXAVAR ADMINISTRATION
     Route: 048
  8. SORAFENIB [Suspect]
     Dosage: 400 MG (DAILY DOSE), , ORAL
     Route: 048
     Dates: start: 20090812, end: 20091022
  9. GLAKAY [Concomitant]
     Dosage: BEFORE NEXAVAR ADMINISTRATION
     Route: 048
  10. SORAFENIB [Suspect]
     Dosage: 600 MG (DAILY DOSE), , ORAL
     Route: 048
     Dates: start: 20090713, end: 20090811
  11. LANSOPRAZOLE [Concomitant]
     Dosage: BEFORE NEXAVAR ADMINISTRATION
     Route: 048
  12. ALDACTONE [Concomitant]
     Dosage: DAILY DOSE 50 MG
     Route: 048
     Dates: start: 20090904, end: 20091026
  13. SORAFENIB [Suspect]
     Indication: HEPATIC NEOPLASM MALIGNANT
     Dosage: 200 MG, BID
     Route: 048
     Dates: start: 20090629, end: 20090712
  14. MAGNESIUM OXIDE [Concomitant]
     Dosage: BEFORE NEXAVAR ADMINISTRATION
     Route: 048
  15. FENTANYL-100 [Concomitant]
     Dosage: DAILY DOSE 2.1 MG
     Route: 062
     Dates: start: 20090802, end: 20090814

REACTIONS (6)
  - HEPATIC FUNCTION ABNORMAL [None]
  - BLOOD PRESSURE INCREASED [None]
  - HEPATIC NEOPLASM MALIGNANT [None]
  - PALMAR-PLANTAR ERYTHRODYSAESTHESIA SYNDROME [None]
  - JAUNDICE [None]
  - WHITE BLOOD CELL COUNT DECREASED [None]
